FAERS Safety Report 23224030 (Version 5)
Quarter: 2024Q4

REPORT INFORMATION
  Report Type: Spontaneous
  Country: SK (occurrence: SK)
  Receive Date: 20231124
  Receipt Date: 20241205
  Transmission Date: 20250115
  Serious: Yes (Hospitalization, Other)
  Sender: CELLTRION
  Company Number: SK-CELLTRION INC.-2023SK019913

PATIENT

DRUGS (9)
  1. RITUXIMAB [Suspect]
     Active Substance: RITUXIMAB
     Indication: Kabuki make-up syndrome
     Dosage: 375 MG/M2
  2. RITUXIMAB [Suspect]
     Active Substance: RITUXIMAB
     Indication: Cytopenia
     Dosage: 375 MG/M2
  3. RITUXIMAB [Suspect]
     Active Substance: RITUXIMAB
     Indication: Cytopenia
     Dosage: 375 MG/M2, 1/WEEK, AT A SURFACE OF 0.79 M2 = 1 X 300 MG I.V. (A TOTAL OF 4 DOSES EVERY 1 WEEK) (ADDI
     Route: 042
     Dates: start: 20220117
  4. RITUXIMAB [Suspect]
     Active Substance: RITUXIMAB
     Dosage: 375 MG/M2, 1/WEEK, AT A SURFACE OF 0.79 M2 = 1 X 300 MG I.V. (A TOTAL OF 4 DOSES EVERY 1 WEEK) (ADDI
     Route: 042
     Dates: start: 20220124
  5. RITUXIMAB [Suspect]
     Active Substance: RITUXIMAB
     Dosage: 375 MG/M2, 1/WEEK, AT A SURFACE OF 0.79 M2 = 1 X 300 MG I.V. (A TOTAL OF 4 DOSES EVERY 1 WEEK) (ADDI
     Route: 042
     Dates: start: 20220204
  6. RITUXIMAB [Suspect]
     Active Substance: RITUXIMAB
     Dosage: 375 MG/M2, 1/WEEK, AT A SURFACE OF 0.79 M2 = 1 X 300 MG I.V. (A TOTAL OF 4 DOSES EVERY 1 WEEK) (ADDI
     Route: 042
     Dates: start: 20220214
  7. RITUXIMAB [Suspect]
     Active Substance: RITUXIMAB
     Dosage: UNK
     Dates: start: 20220117
  8. RITUXIMAB [Suspect]
     Active Substance: RITUXIMAB
     Dosage: UNK
     Dates: start: 20220117
  9. SOLU-MEDROL [Suspect]
     Active Substance: METHYLPREDNISOLONE SODIUM SUCCINATE
     Indication: Cytopenia
     Dosage: 5-10 MG/KG

REACTIONS (7)
  - Cushingoid [Unknown]
  - Ear infection [Unknown]
  - Respiratory tract infection [Unknown]
  - Hypertension [Unknown]
  - Drug ineffective for unapproved indication [Unknown]
  - Therapeutic product effect incomplete [Unknown]
  - Intentional product use issue [Unknown]
